FAERS Safety Report 21947887 (Version 1)
Quarter: 2023Q1

REPORT INFORMATION
  Report Type: Spontaneous
  Country: CA (occurrence: CA)
  Receive Date: 20230203
  Receipt Date: 20230203
  Transmission Date: 20230418
  Serious: Yes (Other)
  Sender: FDA-Public Use
  Company Number: CA-SA-SAC20230201001557

PATIENT
  Age: 40 Year
  Sex: Female

DRUGS (1)
  1. INSULIN LISPRO [Suspect]
     Active Substance: INSULIN LISPRO
     Indication: Diabetes mellitus
     Dosage: UNK
     Route: 065

REACTIONS (3)
  - Amniotic fluid volume decreased [Recovered/Resolved]
  - Umbilical cord abnormality [Recovered/Resolved]
  - Maternal exposure during pregnancy [Unknown]
